FAERS Safety Report 25336922 (Version 1)
Quarter: 2025Q2

REPORT INFORMATION
  Report Type: Spontaneous
  Country: NL (occurrence: NL)
  Receive Date: 20250520
  Receipt Date: 20250520
  Transmission Date: 20250716
  Serious: Yes (Hospitalization)
  Sender: TEVA
  Company Number: None

PATIENT
  Age: 55 Year
  Sex: Male

DRUGS (1)
  1. DESMOPRESSIN [Suspect]
     Active Substance: DESMOPRESSIN
     Indication: Polyuria
     Dosage: BRAND NAME NOT SPECIFIED, 1 X PER DAY 1 PIECE
     Route: 048
     Dates: start: 20250128, end: 20250129

REACTIONS (2)
  - Epilepsy [Unknown]
  - Hyponatraemia [Unknown]
